FAERS Safety Report 5518942-2 (Version None)
Quarter: 2007Q4

REPORT INFORMATION
  Report Type: 
  Country: None (occurrence: None)
  Receive Date: 20071113
  Receipt Date: 20071113
  Transmission Date: 20080405
  Serious: Yes (Hospitalization, Disabling)
  Sender: FDA-Public Use
  Company Number: None

PATIENT
  Age: 48 Year
  Sex: Female
  Weight: 68 kg

DRUGS (9)
  1. GEMCITABINE [Suspect]
     Indication: BILE DUCT CANCER
     Dosage: 1672MG  QWEEK X 3 WEEKS  IV
     Route: 042
     Dates: start: 20070402, end: 20071019
  2. IBUPROFEN TABLETS [Concomitant]
  3. BELLAMINE [Concomitant]
  4. OXYCODONE HCL [Concomitant]
  5. ZOFRAN [Concomitant]
  6. SENNA [Concomitant]
  7. PROTONIX [Concomitant]
  8. COMPAZINE [Concomitant]
  9. HYDROCHLOROTHIAZIDE [Concomitant]

REACTIONS (2)
  - HAEMOLYTIC URAEMIC SYNDROME [None]
  - THROMBOTIC THROMBOCYTOPENIC PURPURA [None]
